FAERS Safety Report 18521253 (Version 1)
Quarter: 2020Q4

REPORT INFORMATION
  Report Type: Spontaneous
  Country: US (occurrence: US)
  Receive Date: 20201118
  Receipt Date: 20201118
  Transmission Date: 20210114
  Serious: Yes (Disabling)
  Sender: FDA-Public Use
  Company Number: None

PATIENT
  Age: 41 Year
  Sex: Female
  Weight: 49.5 kg

DRUGS (3)
  1. CELECOXIB 200MG [Suspect]
     Active Substance: CELECOXIB
     Indication: INFLAMMATION
     Dosage: ?          QUANTITY:60 CAPSULE(S);?
     Route: 048
     Dates: start: 20201117, end: 20201118
  2. KEYTRUDA [Concomitant]
     Active Substance: PEMBROLIZUMAB
  3. TRAMADOL. [Concomitant]
     Active Substance: TRAMADOL

REACTIONS (3)
  - Muscle spasms [None]
  - Dyspnoea [None]
  - Haemoptysis [None]

NARRATIVE: CASE EVENT DATE: 20201118
